FAERS Safety Report 9325064 (Version 2)
Quarter: 2013Q2

REPORT INFORMATION
  Report Type: Spontaneous
  Country: IT (occurrence: None)
  Receive Date: 20130530
  Receipt Date: 20130612
  Transmission Date: 20140414
  Serious: Yes (Hospitalization)
  Sender: FDA-Public Use
  Company Number: 2013AP005413

PATIENT
  Sex: Female

DRUGS (3)
  1. PAROXETINE HYDROCHLORIDE [Suspect]
  2. LORAZEPAM (LORAZEPAM) [Suspect]
  3. IBUPROFEN (IBUPROFEN) [Suspect]

REACTIONS (3)
  - Confusional state [None]
  - Mydriasis [None]
  - Slow speech [None]
